FAERS Safety Report 19179337 (Version 1)
Quarter: 2021Q2

REPORT INFORMATION
  Report Type: Report from Study
  Country: US (occurrence: US)
  Receive Date: 20210426
  Receipt Date: 20210426
  Transmission Date: 20210717
  Serious: Yes (Other)
  Sender: FDA-Public Use
  Company Number: US-GLAXOSMITHKLINE-US2020AMR183233

PATIENT
  Age: 68 Year
  Sex: Female
  Weight: 72.57 kg

DRUGS (8)
  1. NIRAPARIB [Suspect]
     Active Substance: NIRAPARIB
     Dosage: 200 MG, QD
     Route: 065
  2. NIRAPARIB [Suspect]
     Active Substance: NIRAPARIB
     Dosage: 200 MG, QD
     Route: 065
  3. NIRAPARIB [Suspect]
     Active Substance: NIRAPARIB
     Dosage: 200 MG, QD
  4. NIRAPARIB [Suspect]
     Active Substance: NIRAPARIB
     Dosage: 200 MG, QD
     Route: 065
  5. NIRAPARIB [Suspect]
     Active Substance: NIRAPARIB
     Dosage: 200 MG, QD
     Route: 065
  6. NIRAPARIB [Suspect]
     Active Substance: NIRAPARIB
     Indication: OVARIAN CANCER
     Dosage: 200 MG, QD
     Route: 065
     Dates: start: 20200907
  7. NIRAPARIB [Suspect]
     Active Substance: NIRAPARIB
     Dosage: 200 MG, QD
     Dates: end: 20210421
  8. NIRAPARIB [Suspect]
     Active Substance: NIRAPARIB
     Dosage: 200 MG, QD

REACTIONS (17)
  - Thyroid mass [Unknown]
  - Ocular hyperaemia [Unknown]
  - Arthralgia [Not Recovered/Not Resolved]
  - Fatigue [Not Recovered/Not Resolved]
  - Pruritus [Unknown]
  - Back pain [Not Recovered/Not Resolved]
  - Skin irritation [Recovered/Resolved]
  - Metastases to lymph nodes [Unknown]
  - Nausea [Recovered/Resolved]
  - Jugular vein thrombosis [Unknown]
  - Feeling cold [Not Recovered/Not Resolved]
  - Erythema [Unknown]
  - Myalgia [Not Recovered/Not Resolved]
  - Red blood cell count decreased [Unknown]
  - Constipation [Recovered/Resolved]
  - Blister [Recovered/Resolved]
  - Carbohydrate antigen 125 increased [Unknown]

NARRATIVE: CASE EVENT DATE: 202012
